FAERS Safety Report 5167227-5 (Version None)
Quarter: 2006Q4

REPORT INFORMATION
  Report Type: 
  Country: None (occurrence: None)
  Receive Date: 20061129
  Receipt Date: 20061116
  Transmission Date: 20070319
  Serious: Yes (Hospitalization, Disabling)
  Sender: FDA-Public Use
  Company Number: SO6-FRA-04141-01

PATIENT
  Age: 23 Year
  Sex: Female

DRUGS (1)
  1. MONUROL [Suspect]
     Indication: URINARY TRACT INFECTION
     Dosage: 3 G ONCE; PO
     Route: 048
     Dates: start: 20060916, end: 20060916

REACTIONS (7)
  - ABASIA [None]
  - ARTHRALGIA [None]
  - COORDINATION ABNORMAL [None]
  - IMPAIRED DRIVING ABILITY [None]
  - LEUKOCYTOCLASTIC VASCULITIS [None]
  - THERAPY NON-RESPONDER [None]
  - VASCULAR PURPURA [None]
